FAERS Safety Report 18377397 (Version 1)
Quarter: 2020Q4

REPORT INFORMATION
  Report Type: Spontaneous
  Country: US (occurrence: US)
  Receive Date: 20201013
  Receipt Date: 20201013
  Transmission Date: 20210114
  Serious: Yes (Other)
  Sender: FDA-Public Use
  Company Number: None

PATIENT
  Age: 69 Year
  Sex: Male
  Weight: 84.2 kg

DRUGS (2)
  1. REMDESIVIR. [Suspect]
     Active Substance: REMDESIVIR
     Indication: COVID-19
     Dates: start: 20200719, end: 20200724
  2. DEXAMETHASONE 6MG [Concomitant]
     Dates: start: 20200718, end: 20200727

REACTIONS (2)
  - Acute kidney injury [None]
  - Continuous haemodiafiltration [None]

NARRATIVE: CASE EVENT DATE: 20200719
